FAERS Safety Report 7915187-3 (Version None)
Quarter: 2011Q4

REPORT INFORMATION
  Report Type: 
  Country: None (occurrence: None)
  Receive Date: 20111115
  Receipt Date: 20111107
  Transmission Date: 20120403
  Serious: Yes (Other)
  Sender: FDA-Public Use
  Company Number: DE-JNJFOC-20111103051

PATIENT
  Age: 43 Year
  Sex: Female

DRUGS (13)
  1. TILIDIN [Concomitant]
     Route: 048
     Dates: start: 20110415, end: 20110417
  2. DIAZEPAM [Concomitant]
     Route: 048
     Dates: start: 20110414, end: 20110414
  3. DIAZEPAM [Concomitant]
     Route: 048
     Dates: start: 20110413, end: 20110413
  4. CARBAMAZEPINE [Interacting]
     Indication: PRODUCT USED FOR UNKNOWN INDICATION
     Route: 048
     Dates: start: 20110412, end: 20110412
  5. DIAZEPAM [Concomitant]
     Route: 048
     Dates: start: 20110412, end: 20110412
  6. HALDOL [Suspect]
     Indication: PRODUCT USED FOR UNKNOWN INDICATION
     Route: 048
     Dates: start: 20110412, end: 20110412
  7. HALDOL [Suspect]
     Route: 048
     Dates: start: 20110413, end: 20110417
  8. CARBAMAZEPINE [Interacting]
     Route: 048
     Dates: start: 20110413, end: 20110419
  9. TILIDIN [Concomitant]
     Route: 048
     Dates: start: 20110412, end: 20110414
  10. DIAZEPAM [Concomitant]
     Route: 048
     Dates: start: 20110419
  11. DIAZEPAM [Concomitant]
     Route: 048
     Dates: start: 20110417, end: 20110418
  12. TILIDIN [Concomitant]
     Route: 048
     Dates: end: 20110411
  13. DIAZEPAM [Concomitant]
     Route: 048
     Dates: start: 20110415, end: 20110416

REACTIONS (4)
  - DRUG INTERACTION [None]
  - EYELID OEDEMA [None]
  - OEDEMA PERIPHERAL [None]
  - HYPONATRAEMIA [None]
